FAERS Safety Report 6978397-8 (Version None)
Quarter: 2010Q3

REPORT INFORMATION
  Report Type: 
  Country: None (occurrence: None)
  Receive Date: 20100913
  Receipt Date: 20100907
  Transmission Date: 20110219
  Serious: Yes (Disabling)
  Sender: FDA-Public Use
  Company Number: CA-BRISTOL-MYERS SQUIBB COMPANY-15121486

PATIENT
  Age: 82 Year
  Sex: Female

DRUGS (3)
  1. HYDREA [Suspect]
     Indication: MYELOPROLIFERATIVE DISORDER
     Dosage: 1DF=1 TAB
     Route: 048
     Dates: start: 20030101
  2. HYDREA [Suspect]
     Indication: POLYCYTHAEMIA VERA
     Dosage: 1DF=1 TAB
     Route: 048
     Dates: start: 20030101
  3. HYDREA [Suspect]
     Indication: THROMBOCYTOSIS
     Dosage: 1DF=1 TAB
     Route: 048
     Dates: start: 20030101

REACTIONS (5)
  - ARTHRALGIA [None]
  - BURNING SENSATION [None]
  - FATIGUE [None]
  - PAIN IN EXTREMITY [None]
  - RASH MACULAR [None]
